FAERS Safety Report 20716990 (Version 1)
Quarter: 2022Q2

REPORT INFORMATION
  Report Type: Other
  Country: US (occurrence: None)
  Receive Date: 20220417
  Receipt Date: 20220417
  Transmission Date: 20220720
  Serious: Yes (Hospitalization, Other)
  Sender: FDA-Public Use
  Company Number: US-ROCHE-3074283

PATIENT
  Age: 48 Year
  Sex: Female
  Weight: 106.69 kg

DRUGS (7)
  1. OCREVUS [Suspect]
     Active Substance: OCRELIZUMAB
     Indication: Relapsing-remitting multiple sclerosis
     Dosage: INITIALLY 300 MG DAY 1 AND DAY 15; DATE OF TREATMENT: /APR/2020, 24/NOV/2020, 06/OCT/2021
     Route: 065
     Dates: start: 201909
  2. LOSARTAN [Concomitant]
     Active Substance: LOSARTAN
     Indication: Hypertension
     Dosage: YES
     Route: 048
  3. SYNTHROID [Concomitant]
     Active Substance: LEVOTHYROXINE SODIUM
     Dosage: YES
     Route: 048
  4. JANUMET [Concomitant]
     Active Substance: METFORMIN HYDROCHLORIDE\SITAGLIPTIN PHOSPHATE
     Indication: Diabetes mellitus
     Dosage: YES
     Route: 048
  5. BYDUREON [Concomitant]
     Active Substance: EXENATIDE
     Indication: Diabetes mellitus
     Dosage: YES
     Dates: start: 202103
  6. COPAXONE [Concomitant]
     Active Substance: GLATIRAMER ACETATE
  7. TYSABRI [Concomitant]
     Active Substance: NATALIZUMAB

REACTIONS (8)
  - COVID-19 [Recovered/Resolved]
  - Dyspnoea [Recovered/Resolved]
  - Oropharyngeal pain [Recovered/Resolved]
  - Blood glucose increased [Recovered/Resolved]
  - Throat tightness [Recovered/Resolved]
  - Nasopharyngitis [Not Recovered/Not Resolved]
  - Nausea [Recovered/Resolved]
  - Multiple sclerosis relapse [Recovered/Resolved]

NARRATIVE: CASE EVENT DATE: 20200401
